FAERS Safety Report 24391279 (Version 1)
Quarter: 2024Q4

REPORT INFORMATION
  Report Type: Spontaneous
  Country: ES (occurrence: ES)
  Receive Date: 20241003
  Receipt Date: 20241003
  Transmission Date: 20250114
  Serious: Yes (Life-Threatening, Hospitalization, Other)
  Sender: AUROBINDO
  Company Number: ES-AEMPS-1571783

PATIENT
  Age: 87 Year
  Sex: Female
  Weight: 71 kg

DRUGS (3)
  1. TRAMADOL [Suspect]
     Active Substance: TRAMADOL
     Indication: Pain
     Dosage: 25 MILLIGRAM, 3 TIMES A DAY
     Route: 048
     Dates: start: 20240509
  2. CITALOPRAM [Suspect]
     Active Substance: CITALOPRAM
     Indication: Pain
     Dosage: 20 MILLIGRAM, ONCE A DAY
     Route: 048
     Dates: start: 20151204, end: 20240823
  3. AMITRIPTYLINE HYDROCHLORIDE [Suspect]
     Active Substance: AMITRIPTYLINE HYDROCHLORIDE
     Indication: Pain
     Dosage: 25 MILLIGRAM, ONCE A DAY (25MG/24H)
     Route: 048
     Dates: start: 20240426, end: 20240823

REACTIONS (2)
  - Long QT syndrome [Recovered/Resolved]
  - Ventricular tachycardia [Recovered/Resolved]

NARRATIVE: CASE EVENT DATE: 20240823
